FAERS Safety Report 25331223 (Version 1)
Quarter: 2025Q2

REPORT INFORMATION
  Report Type: Spontaneous
  Country: US (occurrence: None)
  Receive Date: 20250519
  Receipt Date: 20250519
  Transmission Date: 20250716
  Serious: Yes (Hospitalization)
  Sender: FDA-CTU
  Company Number: None

PATIENT
  Sex: Male

DRUGS (11)
  1. LENALIDOMIDE [Suspect]
     Active Substance: LENALIDOMIDE
     Dates: start: 20240828
  2. AMLODIPINE [Concomitant]
     Active Substance: AMLODIPINE BESYLATE
  3. AMLODIPINE TAB [Concomitant]
  4. ASPIRIN EC TAB [Concomitant]
  5. CALCIUM [Concomitant]
     Active Substance: CALCIUM
  6. ESCITALOPRAM [Concomitant]
     Active Substance: ESCITALOPRAM OXALATE
  7. FOLIC ACID TAB [Concomitant]
  8. HYDRALAZINE [Concomitant]
     Active Substance: HYDRALAZINE HYDROCHLORIDE
  9. IBANDRONATE TAB 150MG [Concomitant]
  10. LENALIDOMIDE [Concomitant]
     Active Substance: LENALIDOMIDE
  11. LOSARTAN POT TAB [Concomitant]

REACTIONS (2)
  - COVID-19 [None]
  - Intentional dose omission [None]
